FAERS Safety Report 6120610-3 (Version None)
Quarter: 2009Q1

REPORT INFORMATION
  Report Type: 
  Country: None (occurrence: None)
  Receive Date: 20090313
  Receipt Date: 20090310
  Transmission Date: 20090719
  Serious: Yes (Life-Threatening)
  Sender: FDA-Public Use
  Company Number: GXKR2009DE02929

PATIENT
  Age: 66 Year
  Sex: Female
  Weight: 93 kg

DRUGS (3)
  1. METOHEXAL (NGX) (METOPROLOL) TABLET, 47.5MG [Suspect]
     Indication: HYPERTENSION
     Dosage: 47.5 MG, 2 IN DAY, ORAL
     Route: 048
     Dates: end: 20090206
  2. RAMIPRIL [Suspect]
     Indication: HYPERTENSION
     Dosage: 2.5 MG, QD, ORAL
     Route: 048
  3. NAPROXEN [Concomitant]

REACTIONS (1)
  - SINOATRIAL BLOCK [None]
